FAERS Safety Report 7867220-5 (Version None)
Quarter: 2011Q4

REPORT INFORMATION
  Report Type: 
  Country: None (occurrence: None)
  Receive Date: 20111028
  Receipt Date: 20110930
  Transmission Date: 20120403
  Serious: Yes (Other)
  Sender: FDA-Public Use
  Company Number: SI-GLAXOSMITHKLINE-B0754022A

PATIENT
  Sex: Male

DRUGS (2)
  1. PAROXETINE HCL [Suspect]
     Indication: OBSESSIVE-COMPULSIVE DISORDER
     Route: 048
     Dates: start: 20050525
  2. LEXAURIN [Concomitant]
     Route: 065

REACTIONS (4)
  - ANXIETY [None]
  - ASTHENIA [None]
  - CHILLS [None]
  - DEPENDENCE [None]
